FAERS Safety Report 5118526-4 (Version None)
Quarter: 2006Q4

REPORT INFORMATION
  Report Type: 
  Country: None (occurrence: None)
  Receive Date: 20061002
  Receipt Date: 20060831
  Transmission Date: 20070319
  Serious: Yes (Death)
  Sender: FDA-Public Use
  Company Number: JP-BRISTOL-MYERS SQUIBB COMPANY-13495734

PATIENT
  Age: 58 Year
  Sex: Male

DRUGS (4)
  1. TAXOL [Suspect]
     Indication: THYMOMA MALIGNANT
     Route: 041
     Dates: start: 20060711, end: 20060802
  2. PARAPLATIN [Suspect]
     Indication: THYMOMA MALIGNANT
     Route: 041
     Dates: start: 20060711, end: 20060802
  3. NEUTROGIN [Suspect]
     Indication: NEUTROPHIL COUNT DECREASED
     Route: 058
     Dates: start: 20060814, end: 20060814
  4. MYTELASE [Suspect]
     Indication: MUSCULAR WEAKNESS
     Dates: start: 20060825, end: 20060827

REACTIONS (7)
  - ALANINE AMINOTRANSFERASE INCREASED [None]
  - ASPARTATE AMINOTRANSFERASE INCREASED [None]
  - BLOOD CREATINE PHOSPHOKINASE INCREASED [None]
  - DYSPNOEA [None]
  - INFECTION [None]
  - RASH [None]
  - RHABDOMYOLYSIS [None]
